FAERS Safety Report 9705682 (Version 2)
Quarter: 2013Q4

REPORT INFORMATION
  Report Type: Spontaneous
  Country: US (occurrence: US)
  Receive Date: 20131122
  Receipt Date: 20131122
  Transmission Date: 20140711
  Serious: No
  Sender: FDA-Public Use
  Company Number: US-GILEAD-2008-0017271

PATIENT
  Sex: Male

DRUGS (10)
  1. LETAIRIS [Suspect]
     Indication: PULMONARY ARTERIAL HYPERTENSION
     Route: 048
     Dates: start: 20080222, end: 20080702
  2. LASIX [Concomitant]
     Route: 048
  3. ALDACTONE [Concomitant]
     Route: 048
  4. PROSCAR [Concomitant]
     Route: 048
  5. FOLIC ACID [Concomitant]
     Route: 048
  6. IMDUR [Concomitant]
     Route: 048
  7. ZOCOR [Concomitant]
     Route: 048
  8. COUMADIN [Concomitant]
     Route: 048
  9. TOPROL XL [Concomitant]
     Route: 048
  10. ASPIRIN [Concomitant]
     Route: 048

REACTIONS (1)
  - Hypotension [Recovering/Resolving]
